FAERS Safety Report 23840002 (Version 2)
Quarter: 2024Q2

REPORT INFORMATION
  Report Type: Spontaneous
  Country: BE (occurrence: BE)
  Receive Date: 20240510
  Receipt Date: 20240521
  Transmission Date: 20240715
  Serious: No
  Sender: FDA-Public Use
  Company Number: BE-SA-2020SA271507

PATIENT
  Age: 76 Year
  Sex: Female

DRUGS (4)
  1. MABCAMPATH [Suspect]
     Active Substance: ALEMTUZUMAB
     Indication: T-cell prolymphocytic leukaemia
     Dosage: 30 MG, Q3W
     Route: 058
     Dates: start: 2020
  2. MABCAMPATH [Suspect]
     Active Substance: ALEMTUZUMAB
     Indication: Leukocytosis
     Dosage: 30 MG, TIW DOSE: 30 MG 3 TIMES / WEEK
     Route: 058
     Dates: start: 20240403, end: 20240429
  3. MABCAMPATH [Suspect]
     Active Substance: ALEMTUZUMAB
     Indication: Pleural effusion
  4. MABCAMPATH [Suspect]
     Active Substance: ALEMTUZUMAB
     Indication: Chronic lymphocytic leukaemia

REACTIONS (3)
  - Symptom recurrence [Unknown]
  - Incorrect route of product administration [Unknown]
  - Off label use [Unknown]

NARRATIVE: CASE EVENT DATE: 20200101
